FAERS Safety Report 14946340 (Version 1)
Quarter: 2018Q2

REPORT INFORMATION
  Report Type: Spontaneous
  Country: US (occurrence: US)
  Receive Date: 20180529
  Receipt Date: 20180529
  Transmission Date: 20180711
  Serious: Yes (Hospitalization)
  Sender: FDA-Public Use
  Company Number: US-JNJFOC-20180532390

PATIENT
  Sex: Male

DRUGS (1)
  1. INVOKANA [Suspect]
     Active Substance: CANAGLIFLOZIN
     Indication: PRODUCT USED FOR UNKNOWN INDICATION
     Route: 048
     Dates: start: 201704

REACTIONS (6)
  - Seizure [Unknown]
  - Pancreatitis [Unknown]
  - Renal impairment [Unknown]
  - Pancreatic pseudocyst [Unknown]
  - Acute respiratory failure [Unknown]
  - Malnutrition [Unknown]
